FAERS Safety Report 5500093-4 (Version None)
Quarter: 2007Q4

REPORT INFORMATION
  Report Type: 
  Country: None (occurrence: None)
  Receive Date: 20071024
  Receipt Date: 20071015
  Transmission Date: 20080405
  Serious: Yes (Death, Life-Threatening, Hospitalization)
  Sender: FDA-Public Use
  Company Number: 167-20785-07080280

PATIENT
  Age: 67 Year
  Sex: Male

DRUGS (19)
  1. THALIDOMIDE [Suspect]
     Indication: MULTIPLE MYELOMA
     Dosage: 100 MG, DAILY, ORAL; 50 MG, DAILY, ORAL
     Route: 048
     Dates: start: 20070612, end: 20070627
  2. THALIDOMIDE [Suspect]
     Indication: MULTIPLE MYELOMA
     Dosage: 100 MG, DAILY, ORAL; 50 MG, DAILY, ORAL
     Route: 048
     Dates: start: 20070627, end: 20070712
  3. DEXAMETHASONE TAB [Concomitant]
  4. CYCLOPHOSPHAMIDE [Concomitant]
  5. OMEPRAZOLE [Concomitant]
  6. FUROSEMIDE [Concomitant]
  7. PREDNISONE TAB [Concomitant]
  8. METHYLPREDNISOLONE [Concomitant]
  9. BACTRIM [Concomitant]
  10. GANCICLOVIR [Concomitant]
  11. AMBISOME [Concomitant]
  12. TAZOCIN (PIP/TAZO) [Concomitant]
  13. CLARITHROMYCIN [Concomitant]
  14. TEICOPLANIN (TEICOPLANIN) [Concomitant]
  15. METFORMIN HCL [Concomitant]
  16. PIOGLITAZONE HCL [Concomitant]
  17. DIAMICRON (GLICLAZIDE) [Concomitant]
  18. SIMVASTATIN [Concomitant]
  19. CANDESARTAN (CANDESARTAN) [Concomitant]

REACTIONS (11)
  - ABNORMAL BEHAVIOUR [None]
  - ALVEOLITIS [None]
  - GENERAL PHYSICAL HEALTH DETERIORATION [None]
  - INAPPROPRIATE ANTIDIURETIC HORMONE SECRETION [None]
  - INTERSTITIAL LUNG DISEASE [None]
  - NO THERAPEUTIC RESPONSE [None]
  - OEDEMA [None]
  - PARANOIA [None]
  - PULMONARY FIBROSIS [None]
  - PULMONARY MASS [None]
  - SARCOIDOSIS [None]
